FAERS Safety Report 5211869-5 (Version None)
Quarter: 2007Q1

REPORT INFORMATION
  Report Type: 
  Country: None (occurrence: None)
  Receive Date: 20070118
  Receipt Date: 20070110
  Transmission Date: 20070707
  Serious: Yes (Other)
  Sender: FDA-Public Use
  Company Number: AT-BRISTOL-MYERS SQUIBB COMPANY-13621586

PATIENT
  Age: 29 Year
  Sex: Male

DRUGS (9)
  1. SPRYCEL [Suspect]
     Indication: BLAST CRISIS IN MYELOGENOUS LEUKAEMIA
     Dates: start: 20061206
  2. TRAMADOL HCL [Suspect]
     Dates: start: 20061130
  3. UROSIN [Suspect]
     Dates: start: 20061201
  4. TARGOCID [Suspect]
     Dates: start: 20061217, end: 20061223
  5. PRIMAXIN [Suspect]
     Dates: start: 20061218, end: 20061223
  6. CANCIDAS [Suspect]
     Dates: start: 20061219, end: 20061228
  7. ANAEROBEX [Suspect]
     Dates: start: 20061212, end: 20061218
  8. TAZONAM [Suspect]
     Dates: start: 20061216, end: 20061218
  9. ENTEROBENE [Concomitant]
     Dates: start: 20061216

REACTIONS (4)
  - DIARRHOEA [None]
  - HEADACHE [None]
  - NAUSEA [None]
  - PAPILLOEDEMA [None]
